FAERS Safety Report 9587760 (Version 6)
Quarter: 2014Q2

REPORT INFORMATION
  Report Type: Spontaneous
  Country: JP (occurrence: JP)
  Receive Date: 20131003
  Receipt Date: 20140422
  Transmission Date: 20141212
  Serious: Yes (Death, Other)
  Sender: FDA-Public Use
  Company Number: JP-ABBVIE-13P-087-1142107-00

PATIENT
  Age: 72 Year
  Sex: Male
  Weight: 66 kg

DRUGS (22)
  1. HUMIRA [Suspect]
     Indication: RHEUMATOID ARTHRITIS
     Route: 058
     Dates: start: 20121201, end: 20130825
  2. METHOTREXATE [Suspect]
     Indication: PRODUCT USED FOR UNKNOWN INDICATION
     Dates: start: 20111128, end: 201203
  3. METHOTREXATE [Suspect]
     Dates: start: 201203, end: 20120807
  4. METHOTREXATE [Suspect]
     Dates: start: 20120814, end: 20130924
  5. PREDNISOLONE [Concomitant]
     Indication: PRODUCT USED FOR UNKNOWN INDICATION
     Dates: start: 20111128, end: 20111130
  6. PREDNISOLONE [Concomitant]
     Dates: start: 20130629, end: 20130805
  7. PREDNISOLONE [Concomitant]
     Dates: start: 20130806, end: 20131010
  8. ASPIRIN [Concomitant]
     Indication: PERIPHERAL ARTERIAL OCCLUSIVE DISEASE
     Dates: end: 201308
  9. CLOPIDOGREL SULFATE [Concomitant]
     Indication: PERIPHERAL ARTERIAL OCCLUSIVE DISEASE
     Dates: end: 20130903
  10. CILOSTAZOL [Concomitant]
     Indication: PERIPHERAL ARTERIAL OCCLUSIVE DISEASE
     Dates: end: 20130920
  11. CILOSTAZOL [Concomitant]
     Dates: start: 20131010
  12. FOLIC ACID [Concomitant]
     Indication: PROPHYLAXIS
     Dates: start: 20111128, end: 20130924
  13. FOLIC ACID [Concomitant]
     Indication: ADVERSE DRUG REACTION
  14. CARBAZOCHROME SODIUM SULFONATE [Concomitant]
     Indication: HAEMOPTYSIS
     Dates: start: 20130817
  15. ESOMEPRAZOLE MAGNESIUM [Concomitant]
     Indication: PROPHYLAXIS AGAINST GASTROINTESTINAL ULCER
     Dates: start: 20111128, end: 20130912
  16. ESOMEPRAZOLE MAGNESIUM [Concomitant]
     Indication: PROPHYLAXIS AGAINST GASTROINTESTINAL ULCER
  17. REBAMIPIDE [Concomitant]
     Indication: PROPHYLAXIS
     Dates: end: 20131010
  18. REBAMIPIDE [Concomitant]
     Indication: ADVERSE DRUG REACTION
  19. BIFIDOBACTERIUM BIFIDUM [Concomitant]
     Indication: DIARRHOEA
  20. LOSARTAN POTASSIUM/HYDROCHLOROTHIAZIDE [Concomitant]
     Indication: HYPERTENSION
  21. ALLOPURINOL [Concomitant]
     Indication: HYPERURICAEMIA
  22. ROSUVASTATIN CALCIUM [Concomitant]
     Indication: HYPERCHOLESTEROLAEMIA

REACTIONS (12)
  - Lung neoplasm malignant [Fatal]
  - Bone cancer [Fatal]
  - Pulmonary alveolar haemorrhage [Fatal]
  - Haemothorax [Unknown]
  - Peripheral arterial occlusive disease [Unknown]
  - Adrenal insufficiency [Unknown]
  - Renal impairment [Unknown]
  - Pancreatic cyst [Unknown]
  - Hepatic cyst [Unknown]
  - Renal cyst [Unknown]
  - Renal atrophy [Unknown]
  - Pleural effusion [Unknown]
